FAERS Safety Report 7997740-4 (Version None)
Quarter: 2011Q4

REPORT INFORMATION
  Report Type: 
  Country: None (occurrence: None)
  Receive Date: 20111221
  Receipt Date: 20111003
  Transmission Date: 20120403
  Serious: Yes (Death)
  Sender: FDA-Public Use
  Company Number: GB-ROCHE-GNE324261

PATIENT
  Sex: Male

DRUGS (1)
  1. LUCENTIS [Suspect]
     Indication: PRODUCT USED FOR UNKNOWN INDICATION
     Route: 050

REACTIONS (4)
  - CARDIAC FAILURE CONGESTIVE [None]
  - MYOCARDIAL ISCHAEMIA [None]
  - ATRIAL FIBRILLATION [None]
  - AORTIC STENOSIS [None]
